FAERS Safety Report 8887052 (Version 1)
Quarter: 2012Q4

REPORT INFORMATION
  Report Type: 
  Country: CH (occurrence: CH)
  Receive Date: 20121105
  Receipt Date: 20121105
  Transmission Date: 20130627
  Serious: Yes (Death, Other)
  Sender: FDA-Public Use
  Company Number: CH-ROCHE-1151226

PATIENT
  Sex: Male

DRUGS (1)
  1. ZELBORAF [Suspect]
     Indication: METASTATIC MALIGNANT MELANOMA
     Route: 048
     Dates: start: 20111125

REACTIONS (5)
  - Metastatic malignant melanoma [Fatal]
  - Tumour haemorrhage [Fatal]
  - Precancerous skin lesion [Unknown]
  - Lung abscess [Unknown]
  - Asthenia [Unknown]
